FAERS Safety Report 4941870-8 (Version None)
Quarter: 2006Q1

REPORT INFORMATION
  Report Type: 
  Country: None (occurrence: None)
  Receive Date: 20060308
  Receipt Date: 20060220
  Transmission Date: 20060701
  Serious: Yes (Hospitalization)
  Sender: FDA-Public Use
  Company Number: DSA_27809_2006

PATIENT
  Age: 51 Year
  Sex: Female

DRUGS (2)
  1. TAVOR /00273201/ [Suspect]
     Dosage: 20 MG ONCE PO
     Route: 048
     Dates: start: 20060220, end: 20060220
  2. ALCOHOL [Suspect]
     Dosage: DF ONCE PO
     Route: 048
     Dates: start: 20060220, end: 20060220

REACTIONS (5)
  - BOWEL SOUNDS ABNORMAL [None]
  - BREATH ODOUR [None]
  - MULTIPLE DRUG OVERDOSE INTENTIONAL [None]
  - SOMNOLENCE [None]
  - SUICIDE ATTEMPT [None]
